FAERS Safety Report 13361403 (Version 1)
Quarter: 2017Q1

REPORT INFORMATION
  Report Type: Report from Study
  Country: KR (occurrence: KR)
  Receive Date: 20170323
  Receipt Date: 20170323
  Transmission Date: 20170429
  Serious: Yes (Hospitalization)
  Sender: FDA-Public Use
  Company Number: KR-BAXTER-2017BAX011914

PATIENT
  Age: 58 Year
  Sex: Male

DRUGS (3)
  1. EXTRANEAL [Suspect]
     Active Substance: CALCIUM CHLORIDE\ICODEXTRIN\MAGNESIUM CHLORIDE\SODIUM CHLORIDE\SODIUM LACTATE
     Indication: END STAGE RENAL DISEASE
     Route: 033
     Dates: start: 20080227
  2. PHYSIONEAL 1.5% [Suspect]
     Active Substance: CALCIUM CHLORIDE\DEXTROSE\MAGNESIUM CHLORIDE\SODIUM CHLORIDE SOLUTION
     Indication: END STAGE RENAL DISEASE
     Route: 033
     Dates: start: 20080227
  3. PHYSIONEAL 2.5% [Suspect]
     Active Substance: CALCIUM CHLORIDE\DEXTROSE\MAGNESIUM CHLORIDE\SODIUM CHLORIDE SOLUTION
     Indication: END STAGE RENAL DISEASE
     Route: 033
     Dates: start: 20080227

REACTIONS (6)
  - Lip blister [Not Recovered/Not Resolved]
  - Facial pain [Unknown]
  - Otorrhoea [Unknown]
  - Blister [Not Recovered/Not Resolved]
  - Rash [Unknown]
  - Lip pain [Unknown]

NARRATIVE: CASE EVENT DATE: 20170313
